FAERS Safety Report 7275080-9 (Version None)
Quarter: 2011Q1

REPORT INFORMATION
  Report Type: 
  Country: None (occurrence: None)
  Receive Date: 20110204
  Receipt Date: 20110120
  Transmission Date: 20110831
  Serious: Yes (Hospitalization)
  Sender: FDA-Public Use
  Company Number: PHHY2010FR29330

PATIENT
  Sex: Male
  Weight: 97.5 kg

DRUGS (2)
  1. MYCOPHENOLIC ACID [Suspect]
     Dosage: 1440 MG, DAILY
     Route: 048
     Dates: start: 20080318
  2. NEORAL [Suspect]
     Dosage: 150 MG, DAILY
     Route: 048
     Dates: start: 20080318

REACTIONS (1)
  - ERYSIPELAS [None]
